FAERS Safety Report 24184408 (Version 1)
Quarter: 2024Q3

REPORT INFORMATION
  Report Type: Spontaneous
  Country: US (occurrence: US)
  Receive Date: 20240807
  Receipt Date: 20240807
  Transmission Date: 20241017
  Serious: No
  Sender: DR REDDYS
  Company Number: US-DRL-USA-LIT/USA/24/0011258

PATIENT
  Age: 46 Year
  Sex: Female

DRUGS (5)
  1. TACROLIMUS [Suspect]
     Active Substance: TACROLIMUS
     Indication: Chronic spontaneous urticaria
     Route: 048
  2. SIROLIMUS [Suspect]
     Active Substance: SIROLIMUS
     Indication: Chronic spontaneous urticaria
  3. PREDNISONE [Concomitant]
     Active Substance: PREDNISONE
     Indication: Chronic spontaneous urticaria
     Dosage: 15-20 MG DAILY
  4. OMALIZUMAB [Concomitant]
     Active Substance: OMALIZUMAB
     Indication: Chronic spontaneous urticaria
     Dosage: EVERY 2 WEEKS
  5. DAPSONE [Concomitant]
     Active Substance: DAPSONE
     Indication: Chronic spontaneous urticaria

REACTIONS (3)
  - Drug ineffective for unapproved indication [Unknown]
  - Oedema peripheral [Recovered/Resolved]
  - Drug effective for unapproved indication [Unknown]
